FAERS Safety Report 9705826 (Version 2)
Quarter: 2013Q4

REPORT INFORMATION
  Report Type: Spontaneous
  Country: US (occurrence: US)
  Receive Date: 20131122
  Receipt Date: 20131122
  Transmission Date: 20140711
  Serious: Yes (Other)
  Sender: FDA-Public Use
  Company Number: US-GILEAD-2008-0017424

PATIENT
  Sex: Female

DRUGS (5)
  1. LETAIRIS [Suspect]
     Indication: PULMONARY ARTERIAL HYPERTENSION
     Route: 048
     Dates: start: 200808
  2. LETAIRIS [Suspect]
     Route: 048
     Dates: start: 20080626, end: 200807
  3. LETAIRIS [Suspect]
     Route: 048
     Dates: start: 20061016, end: 20080612
  4. METHOTREXATE [Concomitant]
     Dates: end: 20080612
  5. SULFASALAZINE [Concomitant]

REACTIONS (2)
  - Alanine aminotransferase increased [Recovered/Resolved]
  - Aspartate aminotransferase increased [Recovered/Resolved]
